FAERS Safety Report 6988633-X (Version None)
Quarter: 2010Q3

REPORT INFORMATION
  Report Type: 
  Country: None (occurrence: None)
  Receive Date: 20100916
  Receipt Date: 20100908
  Transmission Date: 20110219
  Serious: Yes (Hospitalization, Other)
  Sender: FDA-Public Use
  Company Number: FR-ABBOTT-10P-056-0669763-00

PATIENT
  Age: 16 Year
  Sex: Female

DRUGS (2)
  1. MICROPAKINE LP [Suspect]
     Indication: EPILEPSY
     Dosage: PROLONGED-RELEASE GRANULES; TWICE A DAY
     Route: 048
     Dates: start: 20090301, end: 20100101
  2. MICROPAKINE LP [Suspect]
     Dosage: PROLONGED-RELEASE GRANULES; TWICE A DAY
     Route: 048
     Dates: start: 20100806, end: 20100813

REACTIONS (3)
  - DRUG LEVEL ABOVE THERAPEUTIC [None]
  - OVERDOSE [None]
  - VOMITING [None]
